FAERS Safety Report 12453391 (Version 2)
Quarter: 2016Q3

REPORT INFORMATION
  Report Type: Report from Study
  Country: US (occurrence: US)
  Receive Date: 20160609
  Receipt Date: 20160816
  Transmission Date: 20161109
  Serious: Yes (Other)
  Sender: FDA-Public Use
  Company Number: PHEH2016US014215

PATIENT
  Weight: 63.5 kg

DRUGS (2)
  1. AFINITOR [Suspect]
     Active Substance: EVEROLIMUS
     Indication: BREAST CANCER
     Dosage: 5 MG, QD (ONCE DAILY)
     Route: 048
     Dates: start: 20160319
  2. AROMASIN [Concomitant]
     Active Substance: EXEMESTANE
     Indication: BREAST CANCER
     Dosage: 25 MG, QD (ONCE DAILY)
     Route: 048
     Dates: start: 20160319

REACTIONS (2)
  - Malignant neoplasm progression [Unknown]
  - Thrombosis [Unknown]
